FAERS Safety Report 5049925-7 (Version None)
Quarter: 2006Q2

REPORT INFORMATION
  Report Type: 
  Country: None (occurrence: None)
  Receive Date: 20060614
  Receipt Date: 20060320
  Transmission Date: 20061013
  Serious: Yes (Other)
  Sender: FDA-Public Use
  Company Number: 441334

PATIENT
  Age: 71 Year
  Sex: Female

DRUGS (4)
  1. BONIVA [Suspect]
     Indication: OSTEOPOROSIS
     Dosage: 1 DOSE FORM 1 PER MONTH ORAL
     Route: 048
     Dates: start: 20050915, end: 20051123
  2. OXAPROZIN [Concomitant]
  3. OSCAL (CALCIUM CARBONATE) [Concomitant]
  4. DILTIAZEM [Concomitant]

REACTIONS (1)
  - GASTROOESOPHAGEAL REFLUX DISEASE [None]
